FAERS Safety Report 19998412 (Version 2)
Quarter: 2021Q4

REPORT INFORMATION
  Report Type: Report from Study
  Country: CA (occurrence: CA)
  Receive Date: 20211026
  Receipt Date: 20211126
  Transmission Date: 20220303
  Serious: Yes (Other)
  Sender: FDA-Public Use
  Company Number: CA-UCBSA-2021049441

PATIENT
  Age: 72 Year
  Sex: Male

DRUGS (1)
  1. CERTOLIZUMAB PEGOL [Suspect]
     Active Substance: CERTOLIZUMAB PEGOL
     Indication: Psoriasis
     Dosage: 200 MILLIGRAM, EV 2 WEEKS(QOW)
     Route: 058
     Dates: start: 20191028

REACTIONS (3)
  - Inguinal hernia [Recovering/Resolving]
  - Umbilical hernia [Recovering/Resolving]
  - Hernia repair [Recovered/Resolved]

NARRATIVE: CASE EVENT DATE: 20211001
